FAERS Safety Report 25129119 (Version 1)
Quarter: 2025Q1

REPORT INFORMATION
  Report Type: Spontaneous
  Country: US (occurrence: US)
  Receive Date: 20250327
  Receipt Date: 20250327
  Transmission Date: 20250409
  Serious: No
  Sender: ANI
  Company Number: US-ANIPHARMA-2024-US-062274

PATIENT
  Sex: Female

DRUGS (4)
  1. CORTICOTROPIN [Suspect]
     Active Substance: CORTICOTROPIN
     Indication: Nephrotic syndrome
  2. FUROSEMIDE [Suspect]
     Active Substance: FUROSEMIDE
  3. LISINOPRIL [Suspect]
     Active Substance: LISINOPRIL
  4. ASPIRIN [Suspect]
     Active Substance: ASPIRIN

REACTIONS (2)
  - Alopecia [Unknown]
  - Intermenstrual bleeding [Unknown]
